FAERS Safety Report 7749739-0 (Version None)
Quarter: 2011Q3

REPORT INFORMATION
  Report Type: 
  Country: None (occurrence: None)
  Receive Date: 20110914
  Receipt Date: 20110909
  Transmission Date: 20111222
  Serious: Yes (Other)
  Sender: FDA-Public Use
  Company Number: US-JNJFOC-20061006251

PATIENT
  Sex: Male

DRUGS (4)
  1. RISPERDAL [Suspect]
     Indication: SCHIZOAFFECTIVE DISORDER
  2. EFFEXOR XR [Concomitant]
  3. RISPERDAL [Suspect]
     Indication: TOURETTE'S DISORDER
  4. RISPERDAL [Suspect]
     Indication: ATTENTION DEFICIT/HYPERACTIVITY DISORDER

REACTIONS (2)
  - WEIGHT INCREASED [None]
  - TYPE 2 DIABETES MELLITUS [None]
